FAERS Safety Report 23389059 (Version 5)
Quarter: 2024Q1

REPORT INFORMATION
  Report Type: Spontaneous
  Country: US (occurrence: US)
  Receive Date: 20240110
  Receipt Date: 20240313
  Transmission Date: 20240409
  Serious: No
  Sender: FDA-Public Use
  Company Number: US-PFIZER INC-PV202400001579

PATIENT
  Age: 76 Year
  Sex: Male

DRUGS (2)
  1. INLYTA [Suspect]
     Active Substance: AXITINIB
     Indication: Neoplasm malignant
     Dosage: 5 MG, 2X/DAY
  2. INLYTA [Suspect]
     Active Substance: AXITINIB
     Indication: Renal cancer
     Dosage: 3 MG, 2X/DAY

REACTIONS (8)
  - Erythema [Unknown]
  - Acne [Unknown]
  - Diarrhoea [Recovering/Resolving]
  - Oral candidiasis [Recovering/Resolving]
  - Flatulence [Unknown]
  - Rash pruritic [Unknown]
  - Neoplasm progression [Recovered/Resolved]
  - Product dose omission issue [Unknown]
